FAERS Safety Report 8623556-1 (Version None)
Quarter: 2012Q3

REPORT INFORMATION
  Report Type: 
  Country: None (occurrence: None)
  Receive Date: 20120827
  Receipt Date: 20120806
  Transmission Date: 20120928
  Serious: No
  Sender: FDA-Public Use
  Company Number: US-MYLANLABS-2012S1013877

PATIENT
  Age: 66 Year
  Sex: Female
  Weight: 58.97 kg

DRUGS (9)
  1. LANSOPRAZOLE [Suspect]
     Indication: GASTROOESOPHAGEAL REFLUX DISEASE
     Route: 048
     Dates: start: 20120101, end: 20120701
  2. CHANTIX [Concomitant]
     Indication: SMOKING CESSATION THERAPY
  3. CRESTOR [Concomitant]
     Indication: BLOOD CHOLESTEROL INCREASED
  4. LANSOPRAZOLE [Suspect]
     Indication: BARRETT'S OESOPHAGUS
     Route: 048
     Dates: start: 20120101, end: 20120701
  5. LANSOPRAZOLE [Suspect]
     Route: 048
     Dates: start: 20120101, end: 20120701
  6. TUMS EXTRA STRENGTH [Concomitant]
     Indication: GASTROOESOPHAGEAL REFLUX DISEASE
  7. LISINOPRIL [Concomitant]
     Indication: BLOOD PRESSURE INCREASED
     Route: 048
  8. AMLODIPINE [Concomitant]
     Indication: BLOOD PRESSURE INCREASED
     Route: 048
  9. ASPIRIN [Concomitant]

REACTIONS (2)
  - DRUG EFFECT DECREASED [None]
  - GASTROOESOPHAGEAL REFLUX DISEASE [None]
